FAERS Safety Report 16674218 (Version 18)
Quarter: 2020Q2

REPORT INFORMATION
  Report Type: Report from Study
  Country: FR (occurrence: FR)
  Receive Date: 20190806
  Receipt Date: 20200630
  Transmission Date: 20200713
  Serious: Yes (Hospitalization, Other)
  Sender: FDA-Public Use
  Company Number: FR-CELGENEUS-FRA-20190704612

PATIENT
  Age: 69 Year
  Sex: Male
  Weight: 82 kg

DRUGS (16)
  1. AZACITIDINE. [Suspect]
     Active Substance: AZACITIDINE
     Indication: ACUTE MYELOID LEUKAEMIA
     Dosage: 75 MILLIGRAM/SQ. METER/138 MG
     Route: 058
     Dates: start: 20190429, end: 20190507
  2. AZACITIDINE. [Suspect]
     Active Substance: AZACITIDINE
     Dosage: 138 MILLIGRAM
     Route: 058
     Dates: start: 20190624, end: 20190628
  3. MOVICOL [Concomitant]
     Active Substance: POLYETHYLENE GLYCOL 3350\POTASSIUM CHLORIDE\SODIUM BICARBONATE\SODIUM CHLORIDE
     Indication: PRODUCT USED FOR UNKNOWN INDICATION
     Dosage: 2 IU (INTERNATIONAL UNIT)
     Route: 048
     Dates: start: 20190603, end: 20200127
  4. AZACITIDINE. [Suspect]
     Active Substance: AZACITIDINE
     Dosage: 68 MILLIGRAM
     Route: 058
     Dates: start: 20190805, end: 20190910
  5. AMLOR [Concomitant]
     Active Substance: AMLODIPINE BESYLATE
     Indication: PRODUCT USED FOR UNKNOWN INDICATION
     Dosage: 10 MILLIGRAM
     Route: 048
  6. PENTACARINAT [Concomitant]
     Active Substance: PENTAMIDINE ISETHIONATE
     Indication: PRODUCT USED FOR UNKNOWN INDICATION
     Dosage: .0333 IU (INTERNATIONAL UNIT)
     Route: 055
     Dates: start: 20190624, end: 20190701
  7. PLACEBO [Suspect]
     Active Substance: UNSPECIFIED INGREDIENT
     Indication: ACUTE MYELOID LEUKAEMIA
     Dosage: 500 MILLIGRAM
     Route: 048
     Dates: start: 20190429, end: 20190820
  8. PANTOPRAZOLE [Concomitant]
     Active Substance: PANTOPRAZOLE
     Indication: PRODUCT USED FOR UNKNOWN INDICATION
     Dosage: 40 MILLIGRAM
     Route: 048
  9. ABASAGLAR [Concomitant]
     Active Substance: INSULIN GLARGINE
     Indication: PRODUCT USED FOR UNKNOWN INDICATION
     Dosage: 24 IU (INTERNATIONAL UNIT)
     Route: 058
     Dates: start: 201905
  10. PLACEBO [Suspect]
     Active Substance: UNSPECIFIED INGREDIENT
     Dosage: 500 MILLIGRAM
     Route: 048
     Dates: start: 20190902
  11. BICALAN [Concomitant]
     Indication: PRODUCT USED FOR UNKNOWN INDICATION
     Dosage: 3 IU (INTERNATIONAL UNIT)
     Route: 065
     Dates: start: 201905
  12. AZACITIDINE. [Suspect]
     Active Substance: AZACITIDINE
     Dosage: 144 MILLIGRAM
     Route: 058
     Dates: start: 20190527, end: 20190604
  13. KARDEGIC [Concomitant]
     Active Substance: ASPIRIN DL-LYSINE
     Indication: PRODUCT USED FOR UNKNOWN INDICATION
     Dosage: 75 MILLIGRAM
     Route: 048
     Dates: start: 2003
  14. TENORMINE [Concomitant]
     Active Substance: ATENOLOL
     Indication: PRODUCT USED FOR UNKNOWN INDICATION
     Dosage: 100 MILLIGRAM
     Route: 048
  15. TRAMADOL. [Concomitant]
     Active Substance: TRAMADOL
     Indication: PRODUCT USED FOR UNKNOWN INDICATION
     Route: 048
     Dates: start: 20190429, end: 201907
  16. DOLIPRANE [Concomitant]
     Active Substance: ACETAMINOPHEN
     Indication: HEADACHE
     Route: 065
     Dates: start: 201907

REACTIONS (2)
  - Aspergillus infection [Recovered/Resolved with Sequelae]
  - Electrocardiogram QT prolonged [Recovered/Resolved]

NARRATIVE: CASE EVENT DATE: 20190701
